FAERS Safety Report 11164671 (Version 3)
Quarter: 2015Q2

REPORT INFORMATION
  Report Type: Spontaneous
  Country: BG (occurrence: BG)
  Receive Date: 20150604
  Receipt Date: 20150619
  Transmission Date: 20150821
  Serious: Yes (Death, Life-Threatening, Hospitalization, Other)
  Sender: FDA-Public Use
  Company Number: BG-ASTRAZENECA-2015SE53079

PATIENT
  Age: 20496 Day
  Sex: Male
  Weight: 75 kg

DRUGS (18)
  1. ZOFEN [Concomitant]
     Active Substance: IBUPROFEN
  2. NACL [Concomitant]
     Active Substance: SODIUM CHLORIDE
  3. BRILIQUE [Suspect]
     Active Substance: TICAGRELOR
     Indication: PERCUTANEOUS CORONARY INTERVENTION
     Route: 048
     Dates: start: 20150409, end: 20150505
  4. ASPIRIN. [Concomitant]
     Active Substance: ASPIRIN
     Dates: start: 20150409
  5. HEPAROID [Concomitant]
     Dosage: TWO TIMES A DAY FOR EXTERNAL APLICATION
  6. CRESTOR [Concomitant]
     Active Substance: ROSUVASTATIN CALCIUM
     Dates: start: 20150409
  7. AMIKIN [Concomitant]
     Active Substance: AMIKACIN SULFATE
  8. CONCOR [Concomitant]
     Active Substance: BISOPROLOL FUMARATE
  9. RINGER [Concomitant]
  10. COLCHICINE. [Concomitant]
     Active Substance: COLCHICINE
  11. CLARITHROMYCIN. [Concomitant]
     Active Substance: CLARITHROMYCIN
  12. AXETIN [Concomitant]
     Dates: start: 20150423
  13. BRILIQUE [Suspect]
     Active Substance: TICAGRELOR
     Indication: ACUTE MYOCARDIAL INFARCTION
     Route: 048
     Dates: start: 20150409, end: 20150505
  14. KETONAL [Concomitant]
     Active Substance: KETOPROFEN
     Route: 042
  15. VANCOMYCIN [Concomitant]
     Active Substance: VANCOMYCIN
     Dosage: 2.0 DOSAGE
     Dates: start: 20150426
  16. PERFALGAN [Concomitant]
     Active Substance: ACETAMINOPHEN
  17. UNASYN [Concomitant]
     Active Substance: AMPICILLIN SODIUM\SULBACTAM SODIUM
  18. GENTAMYCIN [Concomitant]
     Active Substance: GENTAMICIN

REACTIONS (7)
  - Anaemia [Unknown]
  - Coma [Unknown]
  - Cerebral haematoma [Fatal]
  - Pericarditis [Unknown]
  - Pericardial haemorrhage [Fatal]
  - Pulmonary fibrosis [Unknown]
  - Subarachnoid haemorrhage [Fatal]

NARRATIVE: CASE EVENT DATE: 20140420
